FAERS Safety Report 6904909-6 (Version None)
Quarter: 2010Q3

REPORT INFORMATION
  Report Type: 
  Country: None (occurrence: None)
  Receive Date: 20100804
  Receipt Date: 20090804
  Transmission Date: 20110219
  Serious: No
  Sender: FDA-Public Use
  Company Number: US-PFIZER INC-2008032326

PATIENT
  Sex: Female
  Weight: 76.2 kg

DRUGS (5)
  1. LYRICA [Suspect]
     Indication: TRIGEMINAL NEURALGIA
     Dosage: 100 MG, 3X/DAY
     Route: 048
     Dates: start: 20050101
  2. LYRICA [Suspect]
     Indication: NEURALGIA
  3. DANAZOL [Concomitant]
     Indication: PLATELET COUNT DECREASED
  4. MIACALCIN [Concomitant]
  5. PERCOCET [Concomitant]

REACTIONS (2)
  - DRUG INEFFECTIVE [None]
  - TRIGEMINAL NEURALGIA [None]
